FAERS Safety Report 23665821 (Version 1)
Quarter: 2024Q1

REPORT INFORMATION
  Report Type: Spontaneous
  Country: US (occurrence: None)
  Receive Date: 20240323
  Receipt Date: 20240323
  Transmission Date: 20240410
  Serious: No
  Sender: FDA-Public Use
  Company Number: 2024A054117

PATIENT

DRUGS (1)
  1. BREZTRI [Suspect]
     Active Substance: BUDESONIDE\FORMOTEROL\GLYCOPYRROLATE
     Indication: Lung disorder
     Route: 055
     Dates: start: 20240201

REACTIONS (4)
  - Illness [Unknown]
  - Memory impairment [Unknown]
  - Product dose omission issue [Unknown]
  - Adverse event [Unknown]
